FAERS Safety Report 7231484-1 (Version None)
Quarter: 2011Q1

REPORT INFORMATION
  Report Type: 
  Country: None (occurrence: None)
  Receive Date: 20110118
  Receipt Date: 20110107
  Transmission Date: 20110831
  Serious: Yes (Other)
  Sender: FDA-Public Use
  Company Number: MW-B.I. PHARMACEUTICALS,INC./RIDGEFIELD-2011-DE-00197GD

PATIENT
  Sex: Male

DRUGS (1)
  1. TRIOMUNE [Suspect]
     Indication: HIV INFECTION
     Dosage: FIXED-DOSE COMBINATION NVP 200 MG/D4T 30 MG/3TC 150 MG
     Dates: start: 20070501, end: 20080401

REACTIONS (7)
  - PAIN [None]
  - LACTIC ACIDOSIS [None]
  - ASTHENIA [None]
  - DECREASED APPETITE [None]
  - ABDOMINAL DISTENSION [None]
  - VOMITING [None]
  - NAUSEA [None]
